FAERS Safety Report 5906786-9 (Version None)
Quarter: 2008Q3

REPORT INFORMATION
  Report Type: 
  Country: None (occurrence: None)
  Receive Date: 20080929
  Receipt Date: 20080915
  Transmission Date: 20090109
  Serious: Yes (Life-Threatening, Hospitalization)
  Sender: FDA-Public Use
  Company Number: 2008AL010525

PATIENT
  Age: 71 Year
  Sex: Male
  Weight: 52 kg

DRUGS (1)
  1. METFORMIN HYDROCHLORIDE [Suspect]
     Indication: DIABETES MELLITUS

REACTIONS (3)
  - CONTINUOUS HAEMODIAFILTRATION [None]
  - LACTIC ACIDOSIS [None]
  - RENAL FAILURE ACUTE [None]
